FAERS Safety Report 16829342 (Version 1)
Quarter: 2019Q3

REPORT INFORMATION
  Report Type: Spontaneous
  Country: US (occurrence: US)
  Receive Date: 20190919
  Receipt Date: 20190919
  Transmission Date: 20191005
  Serious: No
  Sender: FDA-Public Use
  Company Number: US-AMERICAN REGENT INC-20190420

PATIENT
  Sex: Female

DRUGS (2)
  1. INJECTAFER [Suspect]
     Active Substance: FERRIC CARBOXYMALTOSE
     Dosage: ^STANDARD DOSE IN HALF^
     Route: 065
     Dates: start: 201901, end: 201901
  2. INJECTAFER [Suspect]
     Active Substance: FERRIC CARBOXYMALTOSE
     Dosage: ^STANDARD DOSE IN HALF^
     Route: 065
     Dates: start: 201901, end: 201901

REACTIONS (2)
  - Product use in unapproved indication [Unknown]
  - Blood iron increased [Unknown]

NARRATIVE: CASE EVENT DATE: 201901
